FAERS Safety Report 9058759 (Version 2)
Quarter: 2013Q2

REPORT INFORMATION
  Report Type: Spontaneous
  Country: US (occurrence: US)
  Receive Date: 20130204
  Receipt Date: 20130404
  Transmission Date: 20140414
  Serious: Yes (Other)
  Sender: FDA-Public Use
  Company Number: PHEH2013US002824

PATIENT
  Age: 39 Year
  Sex: Male

DRUGS (18)
  1. GILENYA [Suspect]
     Indication: MULTIPLE SCLEROSIS
     Dosage: 0.5 MG, QD
     Route: 048
     Dates: start: 20121017, end: 20130126
  2. FLAVOXATE HCL [Concomitant]
     Indication: MUSCLE SPASMS
     Dosage: 100 MG, PRN
  3. LOVENOX [Concomitant]
     Dosage: 40MG/0.4ML
  4. NAMENDA [Concomitant]
     Dosage: 10 MG, BID
  5. MUPIROCIN [Concomitant]
  6. KEFLEX                                  /UNK/ [Concomitant]
     Dosage: 500 MG, QD
  7. AMBIEN [Concomitant]
     Dosage: 5 MG, QHS
  8. LYRICA [Concomitant]
     Dosage: 75 MG, ONE OR TWO TIMES DAILY
  9. HYDROMORPHONE HCL [Concomitant]
     Dosage: 4 MG, ONE EVERY FOUR HOURS
  10. TRIAMTERENE AND HYDROCHLOROTHIAZIDE [Concomitant]
     Dosage: 37.5-25 MG
  11. CYMBALTA [Concomitant]
     Dosage: 60 MG, QD
  12. XANAX [Concomitant]
     Dosage: UNK, ONE PRN
  13. ARICEPT [Concomitant]
     Dosage: 10 MG, QD
  14. BACLOFEN [Concomitant]
     Dosage: 20 MG, QID
  15. LACTULOSE [Concomitant]
     Dosage: 10G/15ML
  16. DULCOLAX STOOL SOFTENER [Concomitant]
     Dosage: 100 MG, UNK
  17. VENLAFAXINE HYDROCHLORIDE [Concomitant]
     Dosage: 37.5 MG, BID
  18. DANTRIUM [Concomitant]
     Dosage: 25 MG, FOUR TIMES DAILY

REACTIONS (7)
  - Cataract [Not Recovered/Not Resolved]
  - Nystagmus [Not Recovered/Not Resolved]
  - Retinal disorder [Unknown]
  - Eye haemorrhage [Unknown]
  - Visual field defect [Unknown]
  - Macular oedema [Unknown]
  - Lacrimation increased [Unknown]
